FAERS Safety Report 5503928-4 (Version None)
Quarter: 2007Q4

REPORT INFORMATION
  Report Type: 
  Country: None (occurrence: None)
  Receive Date: 20071101
  Receipt Date: 20071024
  Transmission Date: 20080405
  Serious: Yes (Other)
  Sender: FDA-Public Use
  Company Number: US-ROCHE-527777

PATIENT
  Sex: Female

DRUGS (4)
  1. BONIVA [Suspect]
     Indication: OSTEOPENIA
     Dosage: TAKES ON THE FOURTH SUNDAY OF EACH MONTH.
     Route: 065
     Dates: start: 20061001
  2. CENESTIN [Concomitant]
     Indication: DRUG USE FOR UNKNOWN INDICATION
  3. VITAMINS NOS [Concomitant]
     Indication: DRUG USE FOR UNKNOWN INDICATION
  4. VITAMIN D [Concomitant]
     Indication: DRUG USE FOR UNKNOWN INDICATION

REACTIONS (2)
  - COELIAC DISEASE [None]
  - DIVERTICULITIS [None]
